FAERS Safety Report 7441543-6 (Version None)
Quarter: 2011Q2

REPORT INFORMATION
  Report Type: 
  Country: None (occurrence: None)
  Receive Date: 20110428
  Receipt Date: 20110412
  Transmission Date: 20111010
  Serious: No
  Sender: FDA-Public Use
  Company Number: US-B.I. PHARMACEUTICALS,INC./RIDGEFIELD-2011-BP-10625BP

PATIENT
  Sex: Male

DRUGS (5)
  1. CARVEDILOL [Concomitant]
     Indication: PULMONARY EMBOLISM
     Dosage: 12.5 MG
     Route: 048
  2. WARFARIN [Concomitant]
     Indication: CARDIAC DISORDER
     Route: 048
     Dates: start: 20110101
  3. WARFARIN [Concomitant]
     Route: 048
     Dates: start: 20110101
  4. DIGOXIN [Concomitant]
     Indication: PULMONARY EMBOLISM
     Dosage: 0.0625 MG
     Route: 048
  5. SPIRIVA [Suspect]
     Indication: CHRONIC OBSTRUCTIVE PULMONARY DISEASE
     Dosage: 18 MCG
     Route: 055
     Dates: start: 20110228

REACTIONS (1)
  - DYSGEUSIA [None]
